FAERS Safety Report 12071539 (Version 1)
Quarter: 2016Q1

REPORT INFORMATION
  Report Type: Spontaneous
  Country: GR (occurrence: GR)
  Receive Date: 20160212
  Receipt Date: 20160212
  Transmission Date: 20160526
  Serious: Yes (Life-Threatening, Hospitalization)
  Sender: FDA-Public Use
  Company Number: GR-009507513-1602GRC005423

PATIENT
  Age: 72 Year
  Sex: Female

DRUGS (5)
  1. KEPPRA [Concomitant]
     Active Substance: LEVETIRACETAM
  2. ACETAMINOPHEN. [Concomitant]
     Active Substance: ACETAMINOPHEN
  3. KEYTRUDA [Suspect]
     Active Substance: PEMBROLIZUMAB
     Indication: LUNG CANCER METASTATIC
     Dosage: ONE DOSE ON 03-SEP-2015, AND A SECOND DOSE ON 29-SEP-2015
     Route: 042
     Dates: start: 20150903, end: 20150929
  4. FENISTIL [Concomitant]
     Active Substance: DIMETHINDENE
  5. OMEPRAZOLE. [Concomitant]
     Active Substance: OMEPRAZOLE

REACTIONS (8)
  - Off label use [Unknown]
  - Rectal perforation [Recovering/Resolving]
  - Abdominal pain [Recovering/Resolving]
  - Diarrhoea [Recovering/Resolving]
  - Autoimmune colitis [Recovering/Resolving]
  - Enterovesical fistula [Recovering/Resolving]
  - Colostomy [Recovering/Resolving]
  - Surgery [Recovering/Resolving]

NARRATIVE: CASE EVENT DATE: 201510
